FAERS Safety Report 16107739 (Version 1)
Quarter: 2019Q1

REPORT INFORMATION
  Report Type: Spontaneous
  Country: US (occurrence: US)
  Receive Date: 20190322
  Receipt Date: 20190322
  Transmission Date: 20190418
  Serious: No
  Sender: FDA-Public Use
  Company Number: US-LEO PHARMA-317557

PATIENT
  Sex: Female

DRUGS (1)
  1. SKINOREN GEL [Suspect]
     Active Substance: AZELAIC ACID
     Indication: ROSACEA
     Dosage: USED THE PRODUCT TWICE A DAY FOR 4 TO 5 WEEKS
     Route: 061

REACTIONS (1)
  - Drug ineffective [Unknown]
